FAERS Safety Report 13898158 (Version 1)
Quarter: 2017Q3

REPORT INFORMATION
  Report Type: Spontaneous
  Country: US (occurrence: US)
  Receive Date: 20170823
  Receipt Date: 20170823
  Transmission Date: 20171127
  Serious: Yes (Other)
  Sender: FDA-Public Use
  Company Number: PHHY2017US122354

PATIENT
  Age: 36 Year
  Sex: Female

DRUGS (5)
  1. VITAMIN B12 [Concomitant]
     Active Substance: CYANOCOBALAMIN
     Indication: MULTIPLE SCLEROSIS
     Route: 065
  2. CALCIUM [Concomitant]
     Active Substance: CALCIUM
     Indication: MULTIPLE SCLEROSIS
     Route: 065
  3. VITAMIN D [Concomitant]
     Active Substance: CHOLECALCIFEROL
     Indication: MULTIPLE SCLEROSIS
     Route: 065
  4. NORETHINDRONE AND ETHINYL ESTRADIOL AND FERRO [Concomitant]
     Indication: MULTIPLE SCLEROSIS
     Route: 065
  5. GLATOPA [Suspect]
     Active Substance: GLATIRAMER ACETATE
     Indication: MULTIPLE SCLEROSIS
     Dosage: 13 DAILY INJECTIONS
     Route: 065

REACTIONS (12)
  - Nausea [Recovered/Resolved]
  - Jaundice [Recovered/Resolved]
  - Constipation [Recovered/Resolved]
  - Blood alkaline phosphatase increased [Recovered/Resolved]
  - Fatigue [Recovered/Resolved]
  - Dyspnoea [Recovered/Resolved]
  - Aspartate aminotransferase increased [Recovered/Resolved]
  - Alanine aminotransferase increased [Recovered/Resolved]
  - Liver injury [Recovered/Resolved]
  - Blood bilirubin increased [Recovered/Resolved]
  - Urine analysis abnormal [Recovered/Resolved]
  - Vomiting [Recovered/Resolved]
